FAERS Safety Report 22641060 (Version 1)
Quarter: 2023Q2

REPORT INFORMATION
  Report Type: Report from Study
  Country: ZA (occurrence: ZA)
  Receive Date: 20230626
  Receipt Date: 20230626
  Transmission Date: 20230721
  Serious: Yes (Other)
  Sender: FDA-Public Use
  Company Number: ZA-002147023-NVSC2022ZA239461

PATIENT
  Age: 67 Year
  Sex: Female

DRUGS (3)
  1. RIBOCICLIB [Suspect]
     Active Substance: RIBOCICLIB
     Indication: Breast cancer metastatic
     Dosage: 400 MG, QD
     Route: 048
     Dates: start: 20210526, end: 20221025
  2. ZITHROMAX [Concomitant]
     Active Substance: AZITHROMYCIN DIHYDRATE
     Indication: Product used for unknown indication
     Dosage: UNK (3 DAYS)
     Route: 065
     Dates: start: 20221025
  3. ENALAPRIL [Concomitant]
     Active Substance: ENALAPRIL
     Indication: Blood pressure abnormal
     Dosage: UNK
     Route: 065

REACTIONS (15)
  - Pulmonary fibrosis [Unknown]
  - Metastases to spine [Unknown]
  - Influenza [Unknown]
  - Gout [Unknown]
  - Productive cough [Unknown]
  - Chest discomfort [Unknown]
  - Skin burning sensation [Unknown]
  - Nasopharyngitis [Unknown]
  - Dyspnoea [Unknown]
  - Hernia [Unknown]
  - Nausea [Unknown]
  - Dry skin [Unknown]
  - Skin discolouration [Unknown]
  - Urticaria [Unknown]
  - Sensitive skin [Unknown]

NARRATIVE: CASE EVENT DATE: 20221101
